FAERS Safety Report 14109750 (Version 1)
Quarter: 2017Q4

REPORT INFORMATION
  Report Type: Spontaneous
  Country: CN (occurrence: CN)
  Receive Date: 20171020
  Receipt Date: 20171020
  Transmission Date: 20180321
  Serious: Yes (Life-Threatening, Hospitalization)
  Sender: FDA-Public Use
  Company Number: CN-BAXTER-2017BAX035604

PATIENT
  Age: 53 Year
  Sex: Female
  Weight: 45.6 kg

DRUGS (4)
  1. SANQI PANAX NOTOGINSENG [Suspect]
     Active Substance: PANAX NOTOGINSENG ROOT
     Indication: CARDIOVASCULAR DISORDER
     Route: 041
     Dates: start: 20170712, end: 20170717
  2. CEFOTAXIME SODIUM SULBACTAM SODIUM [Suspect]
     Active Substance: CEFOTAXIME SODIUM\SULBACTAM SODIUM
     Indication: INFECTION
     Route: 041
     Dates: start: 20170715, end: 20170717
  3. SODIUM CHLORIDE PHYSIOLOGICAL SOLUTION [Suspect]
     Active Substance: SODIUM CHLORIDE
     Indication: MEDICATION DILUTION
     Route: 041
     Dates: start: 20170715, end: 20170717
  4. BERAPROST SODIUM [Suspect]
     Active Substance: BERAPROST SODIUM
     Indication: CARDIOVASCULAR DISORDER
     Dosage: TABLET
     Route: 048
     Dates: start: 20170712, end: 20170719

REACTIONS (1)
  - Anaphylactic shock [Recovering/Resolving]

NARRATIVE: CASE EVENT DATE: 20170715
